FAERS Safety Report 7118388-X (Version None)
Quarter: 2010Q4

REPORT INFORMATION
  Report Type: 
  Country: None (occurrence: None)
  Receive Date: 20101123
  Receipt Date: 20101115
  Transmission Date: 20110411
  Serious: Yes (Other)
  Sender: FDA-Public Use
  Company Number: US-US-EMD SERONO, INC.-232710J09USA

PATIENT
  Sex: Female

DRUGS (6)
  1. REBIF [Suspect]
     Indication: MULTIPLE SCLEROSIS
     Route: 058
     Dates: start: 20080901, end: 20100205
  2. IBUPROFEN [Concomitant]
     Indication: PAIN
  3. UNSPECIFIED DEPRESSION MEDICATION [Concomitant]
     Indication: DEPRESSION
  4. ULTRAM [Concomitant]
     Indication: PAIN
  5. SOMA [Concomitant]
     Indication: MUSCLE SPASMS
  6. UNSPECIFIED INCONTINENCE MEDICATION [Concomitant]
     Indication: INCONTINENCE

REACTIONS (5)
  - DEPRESSION [None]
  - FIBROMYALGIA [None]
  - RENAL FUNCTION TEST ABNORMAL [None]
  - SELF-INJURIOUS IDEATION [None]
  - URINE OUTPUT DECREASED [None]
